FAERS Safety Report 20818379 (Version 1)
Quarter: 2022Q2

REPORT INFORMATION
  Report Type: Spontaneous
  Country: PT (occurrence: PT)
  Receive Date: 20220512
  Receipt Date: 20220512
  Transmission Date: 20220721
  Serious: Yes (Hospitalization)
  Sender: FDA-Public Use
  Company Number: PT-Accord-263273

PATIENT
  Age: 48 Year
  Sex: Female

DRUGS (4)
  1. MITOMYCIN [Suspect]
     Active Substance: MITOMYCIN
     Indication: Bladder neoplasm
     Dosage: (40 MG MMC IN 40 ML OF SALINE SOLUTION OF NACL 0.9%)
     Route: 043
  2. CHLORHEXIDINE [Concomitant]
     Active Substance: CHLORHEXIDINE
     Dosage: REGULARLY USED PRIOR TO MMC INSTILLATION.
  3. POVIDONE-IODINE [Concomitant]
     Active Substance: POVIDONE-IODINE
     Dosage: REGULARLY USED PRIOR TO MMC INSTILLATION
  4. LEVOTHYROXINE SODIUM [Concomitant]
     Active Substance: LEVOTHYROXINE SODIUM

REACTIONS (2)
  - Dermatitis contact [Recovered/Resolved]
  - Off label use [Unknown]
